FAERS Safety Report 5818080-5 (Version None)
Quarter: 2008Q3

REPORT INFORMATION
  Report Type: 
  Country: None (occurrence: None)
  Receive Date: 20080722
  Receipt Date: 20071005
  Transmission Date: 20090109
  Serious: No
  Sender: FDA-Public Use
  Company Number: US-BAYER-US-2007-036266

PATIENT
  Age: 63 Year
  Sex: Male
  Weight: 98 kg

DRUGS (1)
  1. MAGNEVIST [Suspect]
     Indication: NUCLEAR MAGNETIC RESONANCE IMAGING
     Dosage: UNIT DOSE: 20 ML
     Route: 042
     Dates: start: 20070917, end: 20070917

REACTIONS (7)
  - BURNING SENSATION [None]
  - COUGH [None]
  - DYSPNOEA [None]
  - ERYTHEMA [None]
  - SINUS CONGESTION [None]
  - THROAT TIGHTNESS [None]
  - VOMITING [None]
